FAERS Safety Report 11138385 (Version 2)
Quarter: 2015Q2

REPORT INFORMATION
  Report Type: Report from Study
  Country: CZ (occurrence: CZ)
  Receive Date: 20150526
  Receipt Date: 20150528
  Transmission Date: 20150821
  Serious: Yes (Death)
  Sender: FDA-Public Use
  Company Number: CZ-ABBVIE-15P-217-1396266-00

PATIENT
  Sex: Male
  Weight: 54 kg

DRUGS (1)
  1. DUODOPA [Suspect]
     Active Substance: CARBIDOPA\LEVODOPA
     Indication: PRODUCT USED FOR UNKNOWN INDICATION
     Dosage: RD: 7 ML, CD: 5,5 ML/H, ED: 1 ML.
     Route: 050
     Dates: start: 20090302, end: 20150211

REACTIONS (4)
  - Dehydration [Fatal]
  - Mineral deficiency [Fatal]
  - Gastrointestinal viral infection [Fatal]
  - Death [Fatal]
